FAERS Safety Report 6306958-8 (Version None)
Quarter: 2009Q3

REPORT INFORMATION
  Report Type: 
  Country: None (occurrence: None)
  Receive Date: 20090812
  Receipt Date: 20090731
  Transmission Date: 20100115
  Serious: Yes (Hospitalization)
  Sender: FDA-Public Use
  Company Number: MX-WATSON-2009-06194

PATIENT

DRUGS (2)
  1. CLINDAMYCIN HYDROCHLORIDE [Suspect]
     Indication: RESPIRATORY TRACT INFECTION
     Dosage: UNK
     Route: 048
  2. CHLORPHENIRAMINE MALEATE [Suspect]
     Indication: RESPIRATORY TRACT INFECTION
     Dosage: UNK
     Route: 048

REACTIONS (2)
  - CHOLESTASIS [None]
  - STEVENS-JOHNSON SYNDROME [None]
